FAERS Safety Report 21054251 (Version 1)
Quarter: 2022Q3

REPORT INFORMATION
  Report Type: Report from Study
  Country: US (occurrence: US)
  Receive Date: 20220707
  Receipt Date: 20220707
  Transmission Date: 20221027
  Serious: Yes (Hospitalization, Other)
  Sender: FDA-Public Use
  Company Number: US-TAKEDA-2022TUS044189

PATIENT
  Sex: Male
  Weight: 86 kg

DRUGS (11)
  1. HUMAN IMMUNOGLOBULIN G [Suspect]
     Active Substance: HUMAN IMMUNOGLOBULIN G
     Indication: Kidney transplant rejection
     Dosage: 20 GRAM, 3/WEEK
     Route: 042
     Dates: start: 20220628
  2. MYCOPHENOLATE MOFETIL [Concomitant]
     Active Substance: MYCOPHENOLATE MOFETIL
     Dosage: UNK
     Route: 065
  3. ESOMEPRAZOLE [Concomitant]
     Active Substance: ESOMEPRAZOLE
     Dosage: UNK
     Route: 065
  4. CARVEDILOL [Concomitant]
     Active Substance: CARVEDILOL
     Dosage: UNK
     Route: 065
  5. SODIUM BICARBONATE [Concomitant]
     Active Substance: SODIUM BICARBONATE
     Dosage: UNK
     Route: 065
  6. LOSARTAN [Concomitant]
     Active Substance: LOSARTAN
     Dosage: UNK
     Route: 065
  7. METHYLPREDNISOLONE [Concomitant]
     Active Substance: METHYLPREDNISOLONE
     Dosage: UNK
     Route: 065
  8. VITAMIN D [Concomitant]
     Active Substance: VITAMIN D NOS
     Dosage: UNK
     Route: 065
  9. FISH OIL [Concomitant]
     Active Substance: FISH OIL
     Dosage: UNK
     Route: 065
  10. TACROLIMUS [Concomitant]
     Active Substance: TACROLIMUS
     Dosage: UNK
     Route: 065
  11. FAMOTIDINE [Concomitant]
     Active Substance: FAMOTIDINE
     Dosage: UNK
     Route: 065

REACTIONS (1)
  - Renal impairment [Unknown]
